FAERS Safety Report 5241088-8 (Version None)
Quarter: 2007Q1

REPORT INFORMATION
  Report Type: 
  Country: None (occurrence: None)
  Receive Date: 20070214
  Receipt Date: 20070214
  Transmission Date: 20070707
  Serious: No
  Sender: FDA-Public Use
  Company Number: None

PATIENT
  Age: 41 Year
  Sex: Male
  Weight: 102.0593 kg

DRUGS (1)
  1. ZICAM GEL SWABS MATRIXX INITIATIVES INC. [Suspect]
     Dosage: 1 SWAB NASAL
     Route: 045
     Dates: start: 20070212, end: 20070212

REACTIONS (3)
  - ANOSMIA [None]
  - BURNING SENSATION MUCOSAL [None]
  - NASAL DISCOMFORT [None]
